FAERS Safety Report 16286486 (Version 2)
Quarter: 2019Q2

REPORT INFORMATION
  Report Type: Spontaneous
  Country: US (occurrence: US)
  Receive Date: 20190508
  Receipt Date: 20190610
  Transmission Date: 20190711
  Serious: Yes (Other)
  Sender: FDA-Public Use
  Company Number: US-ROCHE-2310794

PATIENT
  Age: 41 Year
  Sex: Female

DRUGS (1)
  1. OCREVUS [Suspect]
     Active Substance: OCRELIZUMAB
     Indication: MULTIPLE SCLEROSIS
     Route: 042
     Dates: start: 20180629

REACTIONS (10)
  - Fatigue [Not Recovered/Not Resolved]
  - Headache [Unknown]
  - Neutropenia [Unknown]
  - Blood pressure abnormal [Unknown]
  - Infection [Unknown]
  - White blood cell count decreased [Unknown]
  - Throat irritation [Unknown]
  - Ear discomfort [Unknown]
  - Vertigo [Unknown]
  - Urinary tract infection [Unknown]

NARRATIVE: CASE EVENT DATE: 20180629
